FAERS Safety Report 9099032 (Version 1)
Quarter: 2013Q1

REPORT INFORMATION
  Report Type: Spontaneous
  Country: US (occurrence: US)
  Receive Date: 20130213
  Receipt Date: 20130213
  Transmission Date: 20140127
  Serious: Yes (Other)
  Sender: FDA-Public Use
  Company Number: US-ASTELLAS-2013US001477

PATIENT
  Age: 98 Year
  Sex: Female

DRUGS (3)
  1. MYRBETRIQ [Suspect]
     Indication: HYPERTONIC BLADDER
     Dosage: UNK
     Route: 048
     Dates: start: 20130130
  2. VESICARE [Concomitant]
     Indication: HYPERTONIC BLADDER
     Dosage: UNK
     Route: 048
  3. LEVAQUIN [Concomitant]
     Indication: PRODUCT USED FOR UNKNOWN INDICATION
     Dosage: UNK
     Route: 065

REACTIONS (2)
  - Convulsion [Unknown]
  - Urinary tract infection [Unknown]
